FAERS Safety Report 5404542-1 (Version None)
Quarter: 2007Q3

REPORT INFORMATION
  Report Type: 
  Country: None (occurrence: None)
  Receive Date: 20070802
  Receipt Date: 20070725
  Transmission Date: 20080115
  Serious: Yes (Hospitalization)
  Sender: FDA-Public Use
  Company Number: BR-GENENTECH-245391

PATIENT
  Sex: Female
  Weight: 62.5 kg

DRUGS (5)
  1. RITUXAN [Suspect]
     Indication: B-CELL LYMPHOMA
     Dosage: 607 MG, UNK
     Route: 042
     Dates: start: 20070410
  2. CYCLOPHOSPHAMIDE [Suspect]
     Indication: B-CELL LYMPHOMA
     Dosage: 1215 MG, UNK
     Route: 042
     Dates: start: 20070410
  3. DOXORUBICIN HCL [Suspect]
     Indication: B-CELL LYMPHOMA
     Dosage: 81 MG, UNK
     Route: 042
     Dates: start: 20070410
  4. VINCRISTINE [Suspect]
     Indication: B-CELL LYMPHOMA
     Dosage: 2 MG, UNK
     Route: 042
     Dates: start: 20070410
  5. PREDNISONE [Suspect]
     Indication: B-CELL LYMPHOMA
     Dosage: 500 MG, UNK
     Route: 048
     Dates: start: 20070410

REACTIONS (1)
  - FEBRILE NEUTROPENIA [None]
